FAERS Safety Report 13086298 (Version 1)
Quarter: 2017Q1

REPORT INFORMATION
  Report Type: Spontaneous
  Country: US (occurrence: US)
  Receive Date: 20170104
  Receipt Date: 20170104
  Transmission Date: 20170428
  Serious: No
  Sender: FDA-Public Use
  Company Number: US-ALLERGAN-1677905US

PATIENT
  Sex: Female

DRUGS (1)
  1. VRAYLAR [Suspect]
     Active Substance: CARIPRAZINE
     Indication: BIPOLAR DISORDER
     Dosage: 3 MG, UNK
     Route: 048
     Dates: start: 201607, end: 201610

REACTIONS (3)
  - Amnesia [Recovered/Resolved]
  - Drug dose omission [Unknown]
  - Akathisia [Not Recovered/Not Resolved]
